FAERS Safety Report 4559201-4 (Version None)
Quarter: 2005Q1

REPORT INFORMATION
  Report Type: 
  Country: None (occurrence: None)
  Receive Date: 20050121
  Receipt Date: 20050121
  Transmission Date: 20050727
  Serious: Yes (Other)
  Sender: FDA-Public Use
  Company Number: None

PATIENT
  Age: 60 Year
  Sex: Female
  Weight: 99.7913 kg

DRUGS (8)
  1. PRILOSEC OTC [Suspect]
     Indication: DYSPEPSIA
     Dosage: ONE DAILY PO
     Route: 048
     Dates: start: 20041220, end: 20050118
  2. PRILOSEC OTC [Suspect]
     Indication: GASTROOESOPHAGEAL REFLUX DISEASE
     Dosage: ONE DAILY PO
     Route: 048
     Dates: start: 20041220, end: 20050118
  3. FLONASE [Concomitant]
  4. ATROVENT [Concomitant]
  5. CLARITIN-D [Concomitant]
  6. HTZ [Concomitant]
  7. TRAZODONE HCL [Concomitant]
  8. XANAX [Concomitant]

REACTIONS (4)
  - DYSPEPSIA [None]
  - GASTROOESOPHAGEAL REFLUX DISEASE [None]
  - INSOMNIA [None]
  - PHARMACEUTICAL PRODUCT COMPLAINT [None]
